FAERS Safety Report 7012296-0 (Version None)
Quarter: 2010Q3

REPORT INFORMATION
  Report Type: 
  Country: None (occurrence: None)
  Receive Date: 20100922
  Receipt Date: 20091015
  Transmission Date: 20110219
  Serious: Yes (Other)
  Sender: FDA-Public Use
  Company Number: 2009SP031453

PATIENT
  Age: 36 Year
  Sex: Female
  Weight: 68 kg

DRUGS (5)
  1. DESOGESTREL AND ETHINYL ESTRADIOL [Suspect]
     Indication: CONTRACEPTION
     Dosage: PO
     Route: 048
  2. MULTIGRIP (SINGLET 00554101/) [Suspect]
     Indication: INFLUENZA
     Dosage: PO
     Route: 048
     Dates: start: 20091014
  3. BUSCOPAN (SCOPOLAMINE BUTYLBROMIDE) (HYOSCINE BUTYLBROMIDE) [Suspect]
     Indication: LIVER DISORDER
  4. FLORATIL (SACCHAROMYCES BOULARDII) (SACCHAROMYCES BOULARDII) [Suspect]
     Indication: LIVER DISORDER
  5. XANTINON (ACETYL METHIONINE/CHOLINE CITRATE/BETHAINE) (LIPOTROPICS) [Suspect]
     Indication: LIVER DISORDER

REACTIONS (4)
  - DIARRHOEA [None]
  - DRUG INTERACTION [None]
  - INFLUENZA [None]
  - LIVER DISORDER [None]
